FAERS Safety Report 20662064 (Version 1)
Quarter: 2022Q2

REPORT INFORMATION
  Report Type: Spontaneous
  Country: CN (occurrence: CN)
  Receive Date: 20220401
  Receipt Date: 20220401
  Transmission Date: 20220720
  Serious: Yes (Other)
  Sender: FDA-Public Use
  Company Number: CN-ABBVIE-22K-035-4340866-00

PATIENT
  Age: 53 Year
  Sex: Male
  Weight: 70 kg

DRUGS (8)
  1. VALPROATE SODIUM [Suspect]
     Active Substance: VALPROATE SODIUM
     Indication: Seizure prophylaxis
     Route: 048
     Dates: start: 20210104, end: 20210117
  2. AMIKACIN SULFATE [Suspect]
     Active Substance: AMIKACIN SULFATE
     Indication: Pneumonitis
     Route: 041
     Dates: start: 20210101, end: 20210111
  3. CEFOPERAZONE SODIUM\SULBACTAM SODIUM [Suspect]
     Active Substance: CEFOPERAZONE SODIUM\SULBACTAM SODIUM
     Indication: Pneumonitis
     Route: 041
     Dates: start: 20210102, end: 20210118
  4. FLUCONAZOLE [Concomitant]
     Active Substance: FLUCONAZOLE
     Indication: Product used for unknown indication
     Dates: start: 20210111, end: 20210113
  5. CEFTAZIDIME [Concomitant]
     Active Substance: CEFTAZIDIME
     Indication: Product used for unknown indication
     Dates: start: 20201231, end: 20210101
  6. SODIUM CHLORIDE [Concomitant]
     Active Substance: SODIUM CHLORIDE
     Indication: Product used for unknown indication
     Dates: start: 20210102, end: 20210118
  7. AMLODIPINE BESYLATE [Concomitant]
     Active Substance: AMLODIPINE BESYLATE
     Indication: Product used for unknown indication
     Dates: start: 20210103, end: 20210118
  8. ETIMICIN;SODIUM CHLORIDE [Concomitant]
     Indication: Product used for unknown indication
     Dates: start: 20201231, end: 20201231

REACTIONS (1)
  - Hepatic enzyme increased [Recovering/Resolving]

NARRATIVE: CASE EVENT DATE: 20210112
